FAERS Safety Report 6733072-X (Version None)
Quarter: 2010Q2

REPORT INFORMATION
  Report Type: 
  Country: None (occurrence: None)
  Receive Date: 20100518
  Receipt Date: 20100507
  Transmission Date: 20101027
  Serious: Yes (Hospitalization)
  Sender: FDA-Public Use
  Company Number: 230417J08CAN

PATIENT
  Sex: Female

DRUGS (7)
  1. REBIF [Suspect]
     Indication: RELAPSING-REMITTING MULTIPLE SCLEROSIS
     Dosage: 44 MCG, 3 IN 1 WK, 22 MCG, 3 IN 1 WK
     Dates: start: 20060419, end: 20090507
  2. REBIF [Suspect]
     Indication: RELAPSING-REMITTING MULTIPLE SCLEROSIS
     Dosage: 44 MCG, 3 IN 1 WK, 22 MCG, 3 IN 1 WK
     Dates: start: 20090509
  3. ZOPICLONE [Concomitant]
  4. IBUPROFEN [Concomitant]
  5. TYLENOL (COTYLENOL) [Concomitant]
  6. NITRAZADON (NITRAZEPAM) [Concomitant]
  7. VITAMIN D [Concomitant]

REACTIONS (6)
  - ARTHROPATHY [None]
  - HEADACHE [None]
  - INFLUENZA LIKE ILLNESS [None]
  - MALAISE [None]
  - MULTIPLE SCLEROSIS RELAPSE [None]
  - NAUSEA [None]
